FAERS Safety Report 23638627 (Version 1)
Quarter: 2024Q1

REPORT INFORMATION
  Report Type: Spontaneous
  Country: NL (occurrence: NL)
  Receive Date: 20240315
  Receipt Date: 20240315
  Transmission Date: 20240409
  Serious: Yes (Death, Life-Threatening)
  Sender: FDA-Public Use
  Company Number: NL-SUN PHARMACEUTICAL INDUSTRIES LTD-2024RR-436909

PATIENT
  Age: 33 Year
  Sex: Female
  Weight: 53 kg

DRUGS (2)
  1. FINGOLIMOD [Suspect]
     Active Substance: FINGOLIMOD
     Indication: Multiple sclerosis
     Dosage: 1DD1 PIECE FOR 1 YEAR,
     Route: 065
     Dates: start: 20181206
  2. FINGOLIMOD [Suspect]
     Active Substance: FINGOLIMOD
     Dosage: AFTERWARDS 3X/WEEK 1 PIECE
     Route: 065
     Dates: end: 20210325

REACTIONS (1)
  - T-cell type acute leukaemia [Fatal]

NARRATIVE: CASE EVENT DATE: 20230301
